FAERS Safety Report 7703174-X (Version None)
Quarter: 2011Q3

REPORT INFORMATION
  Report Type: 
  Country: None (occurrence: None)
  Receive Date: 20110817
  Receipt Date: 20110809
  Transmission Date: 20111222
  Serious: Yes (Death, Life-Threatening, Hospitalization, Disabling, Other)
  Sender: FDA-Public Use
  Company Number: US-2011-10068

PATIENT
  Age: 72 Year
  Sex: Male

DRUGS (8)
  1. BUSULFAN [Suspect]
     Indication: LYMPHOMA
     Dosage: 60 MG MILLIGRAM(S), DAILY DOSE INTRAVENOUS, 187 MG DAILY, INTRAVENOUS
     Route: 042
     Dates: start: 20101109, end: 20101112
  2. BUSULFAN [Suspect]
     Indication: LYMPHOMA
     Dosage: 60 MG MILLIGRAM(S), DAILY DOSE INTRAVENOUS, 187 MG DAILY, INTRAVENOUS
     Route: 042
     Dates: start: 20101105, end: 20101105
  3. POTASSIUM (POTASSIUM CHLORIDE) [Concomitant]
  4. OXYCODONE HCL [Concomitant]
  5. COMPAZINE [Concomitant]
  6. ETOPOSIDE [Concomitant]
  7. CYCLOPHOSPHAMIDE [Concomitant]
  8. LORAZEPAM [Concomitant]

REACTIONS (16)
  - PNEUMONIA ASPIRATION [None]
  - RASH ERYTHEMATOUS [None]
  - RENAL FAILURE [None]
  - THROMBOCYTOPENIA [None]
  - PANCYTOPENIA [None]
  - ASTHENIA [None]
  - HYPONATRAEMIA [None]
  - HYPOVOLAEMIC SHOCK [None]
  - ANAEMIA [None]
  - ACUTE RESPIRATORY DISTRESS SYNDROME [None]
  - GENERAL PHYSICAL HEALTH DETERIORATION [None]
  - STAPHYLOCOCCAL SEPSIS [None]
  - BACTERIAL INFECTION [None]
  - DELIRIUM [None]
  - SEPSIS [None]
  - RESPIRATORY FAILURE [None]
